FAERS Safety Report 19736149 (Version 1)
Quarter: 2021Q3

REPORT INFORMATION
  Report Type: Report from Study
  Country: BE (occurrence: BE)
  Receive Date: 20210823
  Receipt Date: 20210823
  Transmission Date: 20211014
  Serious: Yes (Death, Hospitalization)
  Sender: FDA-Public Use
  Company Number: BE-MYLANLABS-2021M1053148

PATIENT
  Age: 80 Year
  Sex: Male
  Weight: 75.2 kg

DRUGS (23)
  1. PANTOMED                           /01263204/ [Concomitant]
     Active Substance: PANTOPRAZOLE SODIUM
     Dosage: UNK, QD
     Dates: start: 20200910
  2. AMIODARONE [Concomitant]
     Active Substance: AMIODARONE
     Dosage: UNK UNK, QD
  3. CARBOPLATIN. [Suspect]
     Active Substance: CARBOPLATIN
     Indication: SMALL CELL LUNG CANCER EXTENSIVE STAGE
     Dosage: UNK
     Route: 065
  4. ETOPOSIDE. [Suspect]
     Active Substance: ETOPOSIDE
     Indication: SMALL CELL LUNG CANCER EXTENSIVE STAGE
     Dosage: UNK
     Route: 065
  5. LIXIANA [Concomitant]
     Active Substance: EDOXABAN TOSYLATE
     Dosage: UNK UNK, QD
  6. SYMBICORT [Concomitant]
     Active Substance: BUDESONIDE\FORMOTEROL FUMARATE DIHYDRATE
     Dosage: UNK UNK, BID
     Dates: start: 20090212
  7. SOLU?MEDROL [Concomitant]
     Active Substance: METHYLPREDNISOLONE SODIUM SUCCINATE
     Dosage: UNK
     Dates: start: 20201002, end: 20201002
  8. CETIRIZINE [Concomitant]
     Active Substance: CETIRIZINE HYDROCHLORIDE
     Dosage: UNK UNK, QD
     Dates: start: 20201002, end: 20201214
  9. ATEZOLIZUMAB. [Suspect]
     Active Substance: ATEZOLIZUMAB
     Indication: SMALL CELL LUNG CANCER EXTENSIVE STAGE
     Dosage: 1200 MILLIGRAM, Q3W
     Route: 042
     Dates: start: 20210105
  10. ATEZOLIZUMAB. [Suspect]
     Active Substance: ATEZOLIZUMAB
     Dosage: 1200 MILLIGRAM, Q3W
     Route: 042
     Dates: start: 20201002
  11. FLUCONAZOLE. [Concomitant]
     Active Substance: FLUCONAZOLE
     Dosage: UNK
  12. MOMETASONE [Concomitant]
     Active Substance: MOMETASONE
     Dosage: UNK
     Dates: start: 20121227
  13. BELLOZAL [Concomitant]
     Active Substance: BILASTINE
     Dosage: UNK UNK, QD
     Dates: start: 20201215
  14. CIPROFLOXACINE                     /00697201/ [Concomitant]
     Active Substance: CIPROFLOXACIN
     Indication: PYREXIA
     Dosage: UNK UNK, BID
     Dates: start: 20201022
  15. ATOZET [Concomitant]
     Active Substance: ATORVASTATIN CALCIUM\EZETIMIBE
     Dosage: UNK UNK, QD
  16. LACTULOSE. [Concomitant]
     Active Substance: LACTULOSE
     Dosage: UNK
     Dates: start: 20201105
  17. ATEZOLIZUMAB. [Suspect]
     Active Substance: ATEZOLIZUMAB
     Dosage: 1200 MILLIGRAM, Q3W
     Route: 042
     Dates: start: 20201215
  18. PARACODINE [Concomitant]
     Active Substance: DIHYDROCODEINE BITARTRATE
     Indication: COUGH
     Dosage: UNK UNK, QD
     Dates: start: 20201103
  19. COVERSYL                           /00790702/ [Concomitant]
     Active Substance: PERINDOPRIL
     Dosage: UNK UNK, QD
     Dates: start: 20150716
  20. ATEZOLIZUMAB. [Suspect]
     Active Substance: ATEZOLIZUMAB
     Dosage: 1200 MILLIGRAM, Q3W
     Route: 042
     Dates: start: 20201103
  21. AKYNZEO [Concomitant]
     Active Substance: NETUPITANT\PALONOSETRON HYDROCHLORIDE
     Dosage: UNK
     Dates: start: 20201002
  22. ATEZOLIZUMAB. [Suspect]
     Active Substance: ATEZOLIZUMAB
     Dosage: 1200 MILLIGRAM, Q3W
     Route: 042
     Dates: start: 20201124
  23. BISOPROLOL [Concomitant]
     Active Substance: BISOPROLOL
     Dosage: UNK UNK, QD

REACTIONS (1)
  - Pneumonitis [Fatal]

NARRATIVE: CASE EVENT DATE: 20210119
